FAERS Safety Report 7757224-5 (Version None)
Quarter: 2011Q3

REPORT INFORMATION
  Report Type: 
  Country: None (occurrence: None)
  Receive Date: 20110916
  Receipt Date: 20110908
  Transmission Date: 20111222
  Serious: Yes (Hospitalization)
  Sender: FDA-Public Use
  Company Number: US-US-EMD SERONO, INC.-7082030

PATIENT
  Sex: Female

DRUGS (4)
  1. REBIF [Suspect]
     Indication: PRODUCT USED FOR UNKNOWN INDICATION
     Route: 058
     Dates: start: 20031215, end: 20110201
  2. REBIF [Suspect]
     Route: 058
     Dates: end: 20110301
  3. REBIF [Suspect]
     Route: 058
     Dates: end: 20110401
  4. UNSPECIFIED DIURETIC [Concomitant]
     Indication: FLUID RETENTION

REACTIONS (2)
  - OEDEMA PERIPHERAL [None]
  - INFECTED SKIN ULCER [None]
